FAERS Safety Report 7706854-5 (Version None)
Quarter: 2011Q3

REPORT INFORMATION
  Report Type: 
  Country: None (occurrence: None)
  Receive Date: 20110824
  Receipt Date: 20110810
  Transmission Date: 20111222
  Serious: Yes (Death, Hospitalization)
  Sender: FDA-Public Use
  Company Number: US-GLAXOSMITHKLINE-A0873478A

PATIENT
  Age: 60 Year
  Sex: Male

DRUGS (1)
  1. AVANDIA [Suspect]
     Indication: DIABETES MELLITUS
     Dosage: 2MG PER DAY
     Route: 048
     Dates: start: 20010101, end: 20080213

REACTIONS (6)
  - CHRONIC HEPATIC FAILURE [None]
  - RENAL FAILURE ACUTE [None]
  - CARDIAC FAILURE [None]
  - PNEUMONIA [None]
  - HEPATIC FAILURE [None]
  - DEATH [None]
